FAERS Safety Report 25328500 (Version 1)
Quarter: 2025Q2

REPORT INFORMATION
  Report Type: Report from Study
  Country: UY (occurrence: UY)
  Receive Date: 20250519
  Receipt Date: 20250519
  Transmission Date: 20250717
  Serious: Yes (Other)
  Sender: ABBVIE
  Company Number: UY-ABBVIE-6280188

PATIENT
  Age: 59 Year
  Sex: Female

DRUGS (2)
  1. RINVOQ [Suspect]
     Active Substance: UPADACITINIB
     Indication: Rheumatoid arthritis
     Dosage: RINVOQ 15MG X 30 TABLETS
     Route: 048
     Dates: start: 20230911
  2. RINVOQ [Suspect]
     Active Substance: UPADACITINIB
     Indication: Rheumatoid arthritis
     Route: 048
     Dates: start: 2025

REACTIONS (4)
  - Surgery [Unknown]
  - Foot deformity [Not Recovered/Not Resolved]
  - Foot deformity [Unknown]
  - Inflammation [Unknown]

NARRATIVE: CASE EVENT DATE: 20240101
